FAERS Safety Report 10559711 (Version 1)
Quarter: 2014Q4

REPORT INFORMATION
  Report Type: Spontaneous
  Country: US (occurrence: US)
  Receive Date: 20141103
  Receipt Date: 20141103
  Transmission Date: 20150529
  Serious: No
  Sender: FDA-Public Use
  Company Number: US-PFIZER INC-2014300044

PATIENT

DRUGS (1)
  1. SUTENT [Suspect]
     Active Substance: SUNITINIB MALATE
     Indication: NEOPLASM MALIGNANT
     Dosage: UNK, CYCLIC (2 WEEKS ON, 2 WEEKS OFF)

REACTIONS (3)
  - Disease progression [Unknown]
  - Thrombocytopenia [Unknown]
  - Neoplasm malignant [Unknown]
